FAERS Safety Report 4802747-1 (Version None)
Quarter: 2005Q4

REPORT INFORMATION
  Report Type: 
  Country: None (occurrence: None)
  Receive Date: 20051017
  Receipt Date: 20051017
  Transmission Date: 20060501
  Serious: Yes (Other)
  Sender: FDA-Public Use
  Company Number: None

PATIENT
  Sex: Male
  Weight: 27.2158 kg

DRUGS (2)
  1. FLUOXETINE [Suspect]
     Indication: ASPERGER'S DISORDER
     Dosage: 5 MG ONCE DAILY PO
     Route: 048
     Dates: start: 20040415, end: 20041207
  2. CONCERTA [Concomitant]

REACTIONS (6)
  - DISTURBANCE IN ATTENTION [None]
  - DRUG WITHDRAWAL SYNDROME [None]
  - DYSPHEMIA [None]
  - IMPULSIVE BEHAVIOUR [None]
  - NEGATIVISM [None]
  - PSYCHOMOTOR HYPERACTIVITY [None]
